FAERS Safety Report 13499912 (Version 1)
Quarter: 2017Q2

REPORT INFORMATION
  Report Type: Spontaneous
  Country: US (occurrence: US)
  Receive Date: 20170501
  Receipt Date: 20170501
  Transmission Date: 20170830
  Serious: Yes (Hospitalization)
  Sender: FDA-Public Use
  Company Number: US-VIFOR (INTERNATIONAL) INC.-VIT-2017-04613

PATIENT
  Sex: Male

DRUGS (15)
  1. PREDNISONE. [Concomitant]
     Active Substance: PREDNISONE
  2. SPIRIVA [Concomitant]
     Active Substance: TIOTROPIUM BROMIDE MONOHYDRATE
  3. ASMANEX [Concomitant]
     Active Substance: MOMETASONE FUROATE
  4. VENTOLIN [Concomitant]
     Active Substance: ALBUTEROL SULFATE
  5. DOXYCYCLINE. [Concomitant]
     Active Substance: DOXYCYCLINE
  6. BACITRACIN. [Concomitant]
     Active Substance: BACITRACIN
  7. ALBUTEROL. [Concomitant]
     Active Substance: ALBUTEROL
  8. HYDRALAZINE [Concomitant]
     Active Substance: HYDRALAZINE HYDROCHLORIDE
  9. ISOSORBIDE. [Concomitant]
     Active Substance: ISOSORBIDE
  10. MOXIFLOXACIN. [Concomitant]
     Active Substance: MOXIFLOXACIN
  11. CARVEDILOL. [Concomitant]
     Active Substance: CARVEDILOL
  12. SIMVASTATIN. [Concomitant]
     Active Substance: SIMVASTATIN
  13. VELTASSA [Suspect]
     Active Substance: PATIROMER
     Indication: HYPERKALAEMIA
     Route: 048
     Dates: start: 20160706
  14. PARACETAMOL/HYDROCODONE [Concomitant]
  15. LATANOPROST. [Concomitant]
     Active Substance: LATANOPROST

REACTIONS (1)
  - Dialysis [Not Recovered/Not Resolved]

NARRATIVE: CASE EVENT DATE: 2017
